FAERS Safety Report 4725023-4 (Version None)
Quarter: 2005Q3

REPORT INFORMATION
  Report Type: 
  Country: None (occurrence: None)
  Receive Date: 20050726
  Receipt Date: 20050628
  Transmission Date: 20060218
  Serious: Yes (Hospitalization)
  Sender: FDA-Public Use
  Company Number: 200512186FR

PATIENT
  Age: 22 Year
  Sex: Female

DRUGS (5)
  1. RIFADIN [Suspect]
     Indication: PULMONARY TUBERCULOSIS
     Route: 048
     Dates: start: 20040831, end: 20041031
  2. ETHINYLESTRADIOL W/NORGESTIMATE [Suspect]
     Indication: ORAL CONTRACEPTION
     Route: 048
  3. RIFATER [Concomitant]
     Indication: PULMONARY TUBERCULOSIS
     Dates: end: 20040830
  4. MYAMBUTOL [Concomitant]
     Indication: PULMONARY TUBERCULOSIS
     Dates: end: 20040830
  5. RIMIFON [Concomitant]
     Dates: start: 20040831, end: 20041101

REACTIONS (4)
  - ABORTION INDUCED [None]
  - DRUG EXPOSURE DURING PREGNANCY [None]
  - PREGNANCY [None]
  - PREGNANCY ON ORAL CONTRACEPTIVE [None]
